FAERS Safety Report 8651204 (Version 3)
Quarter: 2013Q1

REPORT INFORMATION
  Report Type: Report from Study
  Country: JP (occurrence: JP)
  Receive Date: 20120705
  Receipt Date: 20130207
  Transmission Date: 20140127
  Serious: Yes (Other)
  Sender: FDA-Public Use
  Company Number: JP-ROCHE-1084039

PATIENT
  Age: 89 Year
  Sex: Female

DRUGS (7)
  1. ALTEPLASE [Suspect]
     Indication: EMBOLIC STROKE
     Route: 042
     Dates: start: 20110819, end: 20110819
  2. EDARAVONE [Suspect]
     Indication: EMBOLIC STROKE
     Route: 042
     Dates: start: 20110819, end: 20110820
  3. HEPARIN SODIUM [Concomitant]
     Route: 041
     Dates: start: 20110820, end: 20110831
  4. HERBESSER [Concomitant]
     Route: 051
     Dates: start: 20110819, end: 20120824
  5. GASTER [Concomitant]
     Route: 051
     Dates: start: 20110819, end: 20110822
  6. NOVO-HEPARIN [Concomitant]
     Route: 041
     Dates: start: 20110820, end: 20110825
  7. ASPIRIN [Concomitant]

REACTIONS (1)
  - Renal disorder [Unknown]
